FAERS Safety Report 5497197-1 (Version None)
Quarter: 2007Q4

REPORT INFORMATION
  Report Type: 
  Country: None (occurrence: None)
  Receive Date: 20071025
  Receipt Date: 20060907
  Transmission Date: 20080405
  Serious: No
  Sender: FDA-Public Use
  Company Number: A0619388A

PATIENT
  Age: 72 Year
  Sex: Male

DRUGS (8)
  1. ADVAIR DISKUS 100/50 [Suspect]
     Indication: ASTHMA
     Dosage: 1PUFF TWICE PER DAY
     Route: 055
  2. ALBUTEROL [Concomitant]
  3. HYDROCHLOROTHIAZIDE [Concomitant]
  4. ALTACE [Concomitant]
  5. MULTI-VITAMIN [Concomitant]
  6. CALCIUM WITH ZINC [Concomitant]
  7. PSYLLIUM [Concomitant]
  8. POTASSIUM SUPPLEMENTS [Concomitant]

REACTIONS (2)
  - DRUG INEFFECTIVE [None]
  - DYSPNOEA [None]
